FAERS Safety Report 23719503 (Version 1)
Quarter: 2024Q2

REPORT INFORMATION
  Report Type: Spontaneous
  Country: US (occurrence: None)
  Receive Date: 20240408
  Receipt Date: 20240408
  Transmission Date: 20240716
  Serious: No
  Sender: FDA-Public Use
  Company Number: None

PATIENT
  Age: 31 Year
  Sex: Female
  Weight: 60.75 kg

DRUGS (3)
  1. METRONIDAZOLE VAGINAL GEL [Suspect]
     Active Substance: METRONIDAZOLE
     Indication: Bacterial vaginosis
     Dosage: OTHER QUANTITY : 5 APPLICATORS;?FREQUENCY : AT BEDTIME;?
     Route: 067
     Dates: start: 20240403, end: 20240407
  2. SERTRALINE [Concomitant]
     Active Substance: SERTRALINE HYDROCHLORIDE
  3. ONE A DAY WOMEN^S MULTIVITAMIN [Concomitant]

REACTIONS (2)
  - Vaginal haemorrhage [None]
  - Vulvovaginal exfoliation [None]

NARRATIVE: CASE EVENT DATE: 20240404
